FAERS Safety Report 22068493 (Version 3)
Quarter: 2023Q2

REPORT INFORMATION
  Report Type: Report from Study
  Country: NL (occurrence: NL)
  Receive Date: 20230307
  Receipt Date: 20230427
  Transmission Date: 20230722
  Serious: Yes (Other)
  Sender: FDA-Public Use
  Company Number: NL-VER-202300021

PATIENT
  Age: 82 Year
  Sex: Male

DRUGS (1)
  1. TRIPTORELIN PAMOATE [Suspect]
     Active Substance: TRIPTORELIN PAMOATE
     Indication: Prostate cancer
     Dosage: OTHER BATCH NUMBER WAS W19638 AND EXPIRY: NOV-2024.?ZINR: 15533212
     Route: 030
     Dates: start: 20220816

REACTIONS (3)
  - Bipolar disorder [Unknown]
  - Hot flush [Unknown]
  - Nausea [Unknown]
